FAERS Safety Report 10058207 (Version 1)
Quarter: 2014Q2

REPORT INFORMATION
  Report Type: Spontaneous
  Country: US (occurrence: US)
  Receive Date: 20140404
  Receipt Date: 20140404
  Transmission Date: 20141212
  Serious: No
  Sender: FDA-Public Use
  Company Number: US-JNJFOC-20140315981

PATIENT
  Age: 48 Year
  Sex: Male
  Weight: 88.45 kg

DRUGS (6)
  1. SANDOZ FENTANYL TRANSDERMAL SYSTEM [Suspect]
     Indication: COMPLEX REGIONAL PAIN SYNDROME
     Route: 062
     Dates: start: 20140321
  2. PERCODAN [Concomitant]
     Indication: BREAKTHROUGH PAIN
     Route: 048
     Dates: start: 2013
  3. XANAX [Concomitant]
     Indication: MUSCLE RELAXANT THERAPY
     Route: 048
     Dates: start: 2007
  4. ZOLOFT [Concomitant]
     Indication: DEPRESSION
     Route: 048
     Dates: start: 2008
  5. ATENOLOL [Concomitant]
     Indication: HYPERTENSION
     Route: 048
     Dates: start: 2002
  6. ASPIRIN [Concomitant]
     Indication: CHEST PAIN
     Dosage: ONCE A DAY OR AS NEEDED
     Route: 048
     Dates: start: 2010

REACTIONS (6)
  - Inappropriate schedule of drug administration [Unknown]
  - Product adhesion issue [Unknown]
  - Product quality issue [Unknown]
  - Wrong technique in drug usage process [Unknown]
  - Poor quality drug administered [Unknown]
  - Drug effect decreased [Not Recovered/Not Resolved]
